FAERS Safety Report 20874347 (Version 2)
Quarter: 2022Q2

REPORT INFORMATION
  Report Type: Spontaneous
  Country: MX (occurrence: MX)
  Receive Date: 20220525
  Receipt Date: 20220602
  Transmission Date: 20220721
  Serious: No
  Sender: FDA-Public Use
  Company Number: MX-ARBOR PHARMACEUTICALS, LLC-MX-2022ARB001304

PATIENT

DRUGS (3)
  1. TRIPTODUR [Suspect]
     Active Substance: TRIPTORELIN
     Indication: Precocious puberty
     Dosage: 3.75 MG X 1 LIO X 1 FCO LIOFILIZADO PARA SOLUTION
     Route: 065
     Dates: start: 202203
  2. TRIPTODUR [Suspect]
     Active Substance: TRIPTORELIN
  3. TRIPTODUR [Suspect]
     Active Substance: TRIPTORELIN

REACTIONS (3)
  - Administration site wound [Unknown]
  - Erythema [Unknown]
  - Administration site pain [Unknown]
